FAERS Safety Report 6037547-0 (Version None)
Quarter: 2009Q1

REPORT INFORMATION
  Report Type: 
  Country: None (occurrence: None)
  Receive Date: 20090114
  Receipt Date: 20090108
  Transmission Date: 20090719
  Serious: Yes (Death, Hospitalization, Other)
  Sender: FDA-Public Use
  Company Number: GB-ELI_LILLY_AND_COMPANY-GB200811003650

PATIENT
  Age: 75 Year
  Sex: Male
  Weight: 96.5 kg

DRUGS (12)
  1. BYETTA [Suspect]
     Indication: TYPE 2 DIABETES MELLITUS
     Dosage: 5 UG, 2/D
     Route: 065
     Dates: start: 20071203, end: 20080107
  2. BYETTA [Suspect]
     Dosage: 10 UG, 2/D
     Route: 065
     Dates: start: 20080108, end: 20081029
  3. METFORMIN HCL [Concomitant]
     Dosage: UNK, UNKNOWN
     Route: 065
  4. ASPIRIN [Concomitant]
     Indication: MYOCARDIAL ISCHAEMIA
     Dosage: 75 MG, DAILY (1/D)
     Route: 065
  5. RAMIPRIL [Concomitant]
     Indication: HYPERTENSION
     Dosage: 5 MG, DAILY (1/D)
     Route: 065
  6. CITALOPRAM HYDROBROMIDE [Concomitant]
     Dosage: UNK, UNKNOWN
     Route: 065
  7. DICYCLOMINE HYDROCHLORIDE [Concomitant]
     Dosage: UNK, UNKNOWN
     Route: 065
  8. GLICLAZIDE [Concomitant]
     Dosage: UNK, UNKNOWN
     Route: 065
  9. AMITRIPTYLINE HCL [Concomitant]
     Dosage: UNK, UNKNOWN
     Route: 065
  10. SIMVASTATIN [Concomitant]
     Dosage: UNK, UNKNOWN
     Route: 065
  11. LEVOTHYROXINE SODIUM [Concomitant]
     Dosage: UNK, UNKNOWN
     Route: 065
  12. TIOTROPIUM BROMIDE [Concomitant]
     Dosage: UNK, UNKNOWN
     Route: 065

REACTIONS (8)
  - ACUTE MYOCARDIAL INFARCTION [None]
  - ATELECTASIS [None]
  - CHOLELITHIASIS [None]
  - DIVERTICULUM [None]
  - HOSPITALISATION [None]
  - MYOCARDIAL ISCHAEMIA [None]
  - PANCREATITIS [None]
  - PANCREATITIS ACUTE [None]
